FAERS Safety Report 4521794-0 (Version None)
Quarter: 2004Q4

REPORT INFORMATION
  Report Type: 
  Country: None (occurrence: None)
  Receive Date: 20041207
  Receipt Date: 20041124
  Transmission Date: 20050328
  Serious: Yes (Other)
  Sender: FDA-Public Use
  Company Number: 2004101388

PATIENT

DRUGS (1)
  1. VALDECOXIB [Suspect]
     Indication: ILL-DEFINED DISORDER

REACTIONS (2)
  - ATROPHY [None]
  - TENDON DISORDER [None]
